FAERS Safety Report 8544524-4 (Version None)
Quarter: 2012Q3

REPORT INFORMATION
  Report Type: 
  Country: None (occurrence: None)
  Receive Date: 20120727
  Receipt Date: 20120717
  Transmission Date: 20120928
  Serious: Yes (Other)
  Sender: FDA-Public Use
  Company Number: GB-ABBOTT-12P-163-0957337-00

PATIENT
  Sex: Female

DRUGS (5)
  1. WARFARIN SODIUM [Concomitant]
     Indication: PRODUCT USED FOR UNKNOWN INDICATION
  2. VALPROATE SODIUM [Suspect]
     Indication: EPILEPSY
  3. TEGRETOL [Suspect]
     Indication: EPILEPSY
  4. TONOPAN-B [Suspect]
     Indication: PRODUCT USED FOR UNKNOWN INDICATION
  5. DIGOXIN [Concomitant]
     Indication: PRODUCT USED FOR UNKNOWN INDICATION

REACTIONS (7)
  - ABDOMINAL PAIN UPPER [None]
  - DIZZINESS [None]
  - CARDIAC VALVE DISEASE [None]
  - UPPER LIMB FRACTURE [None]
  - FALL [None]
  - ABDOMINAL DISCOMFORT [None]
  - TREMOR [None]
